FAERS Safety Report 4463236-X (Version None)
Quarter: 2004Q3

REPORT INFORMATION
  Report Type: 
  Country: None (occurrence: None)
  Receive Date: 20040930
  Receipt Date: 20040913
  Transmission Date: 20050211
  Serious: Yes (Hospitalization, Other)
  Sender: FDA-Public Use
  Company Number: US-GLAXOSMITHKLINE-A0525426A

PATIENT
  Age: 48 Year
  Sex: Male
  Weight: 105 kg

DRUGS (5)
  1. AVANDIA [Suspect]
     Dosage: 4MG PER DAY
     Route: 048
     Dates: start: 20040821, end: 20040901
  2. HYTRIN [Concomitant]
     Dosage: 10MG AT NIGHT
     Route: 048
  3. ACCUPRIL [Concomitant]
     Indication: DIABETES MELLITUS
     Dosage: 10MG PER DAY
     Route: 048
  4. NEXIUM [Concomitant]
     Dosage: 40MG PER DAY
     Route: 048
  5. GLUCOTROL XL [Concomitant]
     Indication: DIABETES MELLITUS
     Dosage: 20MG PER DAY
     Route: 048

REACTIONS (2)
  - ABDOMINAL PAIN [None]
  - PANCREATITIS [None]
